FAERS Safety Report 12728323 (Version 3)
Quarter: 2016Q4

REPORT INFORMATION
  Report Type: Spontaneous
  Country: MX (occurrence: MX)
  Receive Date: 20160909
  Receipt Date: 20161021
  Transmission Date: 20170207
  Serious: Yes (Other)
  Sender: FDA-Public Use
  Company Number: MX-BEH-2016073180

PATIENT
  Age: 52 Year
  Sex: Male
  Weight: 66 kg

DRUGS (1)
  1. ALBUMINA HUMANA BEHRING 25 [Suspect]
     Active Substance: ALBUMIN HUMAN
     Indication: VOLUME BLOOD DECREASED
     Dosage: 50 ML, UNK
     Route: 042
     Dates: start: 20160825, end: 20160825

REACTIONS (3)
  - Product odour abnormal [Unknown]
  - Liquid product physical issue [Unknown]
  - Counterfeit drug administered [Unknown]

NARRATIVE: CASE EVENT DATE: 20160825
